FAERS Safety Report 21032835 (Version 3)
Quarter: 2022Q3

REPORT INFORMATION
  Report Type: Spontaneous
  Country: US (occurrence: US)
  Receive Date: 20220701
  Receipt Date: 20220815
  Transmission Date: 20221027
  Serious: Yes (Hospitalization, Other)
  Sender: FDA-Public Use
  Company Number: US-NOVARTISTESTPH-NVSC2022US150319

PATIENT
  Age: 5 Month
  Sex: Female

DRUGS (3)
  1. ZOLGENSMA [Suspect]
     Active Substance: ONASEMNOGENE ABEPARVOVEC-XIOI
     Indication: Spinal muscular atrophy
     Dosage: UNK UNK, ONCE/SINGLE
     Route: 042
     Dates: start: 20220527, end: 20220527
  2. PREDNISOLONE [Concomitant]
     Active Substance: PREDNISOLONE
     Indication: Immune enhancement therapy
     Dosage: UNK UNK, QD
     Route: 048
     Dates: start: 20220526
  3. FAMOTIDINE [Concomitant]
     Active Substance: FAMOTIDINE
     Indication: Device delivery system issue
     Dosage: UNK UNK, QD
     Route: 048
     Dates: start: 20220526

REACTIONS (5)
  - Aspartate aminotransferase increased [Recovered/Resolved]
  - Alanine aminotransferase increased [Not Recovered/Not Resolved]
  - Thrombocytopenia [Recovered/Resolved]
  - Liver function test increased [Unknown]
  - Gamma-glutamyltransferase increased [Not Recovered/Not Resolved]

NARRATIVE: CASE EVENT DATE: 20220616
